FAERS Safety Report 5164838-8 (Version None)
Quarter: 2006Q4

REPORT INFORMATION
  Report Type: 
  Country: None (occurrence: None)
  Receive Date: 20061124
  Receipt Date: 20061107
  Transmission Date: 20070319
  Serious: Yes (Other)
  Sender: FDA-Public Use
  Company Number: 149738ISR

PATIENT
  Age: 63 Year
  Sex: Male

DRUGS (5)
  1. CARBAMAZEPINE [Suspect]
     Indication: TREMOR
     Dosage: 200 MG (1 IN 1 D) ORAL
     Route: 048
     Dates: start: 20061101
  2. LOSARTAN POTASSIUM [Concomitant]
  3. FUROSEMIDE [Concomitant]
  4. AMLODIPINE [Concomitant]
  5. INSULIN [Concomitant]

REACTIONS (2)
  - DIZZINESS [None]
  - HAEMOPTYSIS [None]
